FAERS Safety Report 8080939-9 (Version None)
Quarter: 2012Q1

REPORT INFORMATION
  Report Type: 
  Country: None (occurrence: None)
  Receive Date: 20120130
  Receipt Date: 20120123
  Transmission Date: 20120608
  Serious: Yes (Hospitalization)
  Sender: FDA-Public Use
  Company Number: US-ABBOTT-12P-163-0897559-00

PATIENT
  Age: 67 Year
  Sex: Female

DRUGS (8)
  1. ASPIRIN [Concomitant]
     Indication: PRODUCT USED FOR UNKNOWN INDICATION
     Dosage: DAILY DOSE: 81MG
  2. PLAQUENIL [Concomitant]
     Indication: ARTHRITIS
  3. UNKNOWN MEDICATION [Concomitant]
     Indication: CARDIAC VENTRICULAR DISORDER
  4. FLECAINIDE ACETATE [Concomitant]
     Indication: CARDIAC DISORDER
  5. MULTI-VITAMIN [Concomitant]
     Indication: PRODUCT USED FOR UNKNOWN INDICATION
     Dosage: DAILY
  6. HUMIRA [Suspect]
     Dates: start: 20120114
  7. HUMIRA [Suspect]
     Indication: RHEUMATOID ARTHRITIS
     Dates: end: 20111210
  8. UNKNOWN MEDICATION [Concomitant]
     Indication: PALPITATIONS

REACTIONS (5)
  - DYSPNOEA [None]
  - COUGH [None]
  - PNEUMONIA [None]
  - BACK PAIN [None]
  - PNEUMOTHORAX [None]
